FAERS Safety Report 5685066-3 (Version None)
Quarter: 2008Q1

REPORT INFORMATION
  Report Type: 
  Country: None (occurrence: None)
  Receive Date: 20080328
  Receipt Date: 20000403
  Transmission Date: 20080703
  Serious: Yes (Death, Other)
  Sender: FDA-Public Use
  Company Number: US-ROCHE-233277

PATIENT
  Age: 45 Year
  Sex: Male

DRUGS (8)
  1. SAQUINAVIR [Suspect]
     Indication: HIV INFECTION
     Route: 065
  2. DIDANOSINE [Suspect]
     Indication: HIV INFECTION
     Route: 065
  3. NEVIRAPINE [Suspect]
     Indication: HIV INFECTION
     Route: 065
  4. RITONAVIR [Suspect]
     Indication: HIV INFECTION
     Route: 065
  5. ZIDOVUDINE [Suspect]
     Indication: HIV INFECTION
     Route: 065
  6. LAMIVUDINE [Suspect]
     Indication: HIV INFECTION
     Route: 065
  7. INDINIVIR SULFATE [Suspect]
     Indication: HIV INFECTION
     Route: 065
  8. STAVUDINE [Suspect]
     Indication: HIV INFECTION
     Route: 065

REACTIONS (6)
  - DEATH [None]
  - DRUG INTOLERANCE [None]
  - GRAND MAL CONVULSION [None]
  - HEADACHE [None]
  - NEUROLOGICAL SYMPTOM [None]
  - PROGRESSIVE MULTIFOCAL LEUKOENCEPHALOPATHY [None]
